FAERS Safety Report 13939832 (Version 6)
Quarter: 2018Q4

REPORT INFORMATION
  Report Type: Spontaneous
  Country: US (occurrence: US)
  Receive Date: 20170906
  Receipt Date: 20181008
  Transmission Date: 20190204
  Serious: Yes (Hospitalization)
  Sender: FDA-Public Use
  Company Number: US-ASTRAZENECA-2017SE86704

PATIENT
  Age: 27928 Day
  Sex: Female
  Weight: 52.2 kg

DRUGS (4)
  1. TUDORZA PRESSAIR [Suspect]
     Active Substance: ACLIDINIUM BROMIDE
     Indication: CHRONIC OBSTRUCTIVE PULMONARY DISEASE
     Route: 055
     Dates: start: 201611
  2. TUDORZA PRESSAIR [Suspect]
     Active Substance: ACLIDINIUM BROMIDE
     Indication: CHRONIC OBSTRUCTIVE PULMONARY DISEASE
     Route: 055
     Dates: start: 20170802
  3. THYROID [Concomitant]
     Active Substance: LEVOTHYROXINE\LIOTHYRONINE
  4. ADVAIR HFA [Concomitant]
     Active Substance: FLUTICASONE PROPIONATE\SALMETEROL XINAFOATE

REACTIONS (9)
  - Malaise [Not Recovered/Not Resolved]
  - Herpes zoster [Unknown]
  - Circumstance or information capable of leading to medication error [Unknown]
  - Product dose omission [Unknown]
  - Herpes zoster meningitis [Unknown]
  - Headache [Recovered/Resolved]
  - Device malfunction [Unknown]
  - Intentional product misuse [Unknown]
  - Medication error [Unknown]

NARRATIVE: CASE EVENT DATE: 20180929
